FAERS Safety Report 10264388 (Version 1)
Quarter: 2014Q2

REPORT INFORMATION
  Report Type: Spontaneous
  Country: DE (occurrence: DE)
  Receive Date: 20140627
  Receipt Date: 20140627
  Transmission Date: 20141212
  Serious: Yes (Hospitalization)
  Sender: FDA-Public Use
  Company Number: DE-AMGEN-DEUSP2014047856

PATIENT
  Sex: Female

DRUGS (15)
  1. NEULASTA [Suspect]
     Indication: B-CELL LYMPHOMA
     Dosage: 263 MUG, DAY 4-13 OF EACH CYCLE
     Route: 058
     Dates: start: 20140606
  2. RITUXIMAB [Concomitant]
     Indication: B-CELL LYMPHOMA
     Dosage: 850 MG, 1 TIMES IN 2 WEEKS
     Route: 042
     Dates: start: 20140527
  3. CYCLOPHOSPHAMIDE [Concomitant]
     Indication: B-CELL LYMPHOMA
     Dosage: 1703 MG, 1 TIMES IN 2 WEEKS
     Route: 042
     Dates: start: 20140528
  4. DOXORUBICINE                       /00330901/ [Concomitant]
     Indication: B-CELL LYMPHOMA
     Dosage: 114 MG, 1 TIMES IN 2 WEEKS
     Route: 042
     Dates: start: 20140528
  5. VINCRISTINE [Concomitant]
     Indication: B-CELL LYMPHOMA
     Dosage: 2 MG, 1 TIMES IN 2 WEEKS
     Route: 042
     Dates: start: 20140528
  6. PREDNISONE [Concomitant]
     Indication: B-CELL LYMPHOMA
     Dosage: 100 MG, DAY 1-5 EACH CYCLE
     Route: 048
     Dates: start: 20140528
  7. OPIPRAMOL [Concomitant]
     Indication: DEPRESSED MOOD
     Dosage: 50 MG, 1 TIMES A DAY
     Route: 048
  8. BEZAFIBRAT [Concomitant]
     Indication: BLOOD TRIGLYCERIDES INCREASED
     Dosage: 200 MG, ONE TIMES A DAY
     Route: 048
  9. PANTOPRAZOLE SODIUM [Concomitant]
     Indication: PROPHYLAXIS
     Dosage: 40 MG, 1 TIMES A DAY
     Route: 048
  10. ALLOPURINOL [Concomitant]
     Indication: HYPERURICAEMIA
     Dosage: 300 MG, 1 TIMES A DAY
     Route: 048
  11. LEVOFLOXACIN [Concomitant]
     Indication: PROPHYLAXIS
     Dosage: 500 MG, 1 TIMES A DAY
     Route: 048
     Dates: start: 20140602
  12. ACYCLOVIR                          /00587301/ [Concomitant]
     Indication: PROPHYLAXIS
     Dosage: 400 MG, 4 TIMES A DAY
     Route: 048
  13. TRIMETHOPRIM SULFAMETHOXAZOLE [Concomitant]
     Indication: PROPHYLAXIS
     Dosage: 960 MG, 2 TIMES A WEEK
     Route: 048
  14. METAMIZOLE SODIUM [Concomitant]
     Indication: PAIN
     Dosage: 30 GTT, AS REQUIRED
     Route: 048
     Dates: start: 20140607
  15. IBUPROFEN [Concomitant]
     Indication: PAIN
     Dosage: 400 MG, AS REQUIRED
     Route: 048

REACTIONS (1)
  - Back pain [Recovered/Resolved]
